FAERS Safety Report 7622549-0 (Version None)
Quarter: 2011Q3

REPORT INFORMATION
  Report Type: 
  Country: None (occurrence: None)
  Receive Date: 20110712
  Receipt Date: 20110707
  Transmission Date: 20111222
  Serious: Yes (Death)
  Sender: FDA-Public Use
  Company Number: 2011SP031647

PATIENT
  Age: 3 Year
  Sex: Female

DRUGS (6)
  1. IBRUPROFEN [Concomitant]
  2. PAVULON [Suspect]
     Indication: THERMAL BURN
     Dosage: 2.5 MG;, 2.0 MG;
     Dates: start: 20091129
  3. XYLOCAIN /00033401/ [Concomitant]
  4. PHENERGAN HCL [Concomitant]
  5. DORMICUM (OTHER MANUFACTURER) (NO PREF. NAME) [Suspect]
     Indication: THERMAL BURN
  6. DERMAZINE [Concomitant]

REACTIONS (5)
  - LOSS OF CONSCIOUSNESS [None]
  - RESPIRATORY ARREST [None]
  - MEDICATION ERROR [None]
  - PULSE ABSENT [None]
  - CARDIAC FAILURE [None]
